FAERS Safety Report 13078169 (Version 4)
Quarter: 2017Q2

REPORT INFORMATION
  Report Type: Spontaneous
  Country: BR (occurrence: BR)
  Receive Date: 20170102
  Receipt Date: 20170412
  Transmission Date: 20170830
  Serious: Yes (Hospitalization, Other)
  Sender: FDA-Public Use
  Company Number: BR-B.I. PHARMACEUTICALS,INC./RIDGEFIELD-2016-BI-087590

PATIENT
  Age: 68 Year
  Sex: Female
  Weight: 82 kg

DRUGS (12)
  1. ATENSINA [Suspect]
     Active Substance: CLONIDINE
     Dosage: STARTED BY HERSELF; START DATE: -SEP-2016
     Route: 048
  2. RUSOVAS [Concomitant]
     Active Substance: ROSUVASTATIN
     Indication: BLOOD CHOLESTEROL INCREASED
     Route: 048
     Dates: start: 2014
  3. SULFATO DE CLOPIDOGREL [Concomitant]
     Indication: CARDIOVASCULAR DISORDER
     Route: 048
     Dates: start: 201509
  4. SELOZOK [Concomitant]
     Active Substance: METOPROLOL SUCCINATE
     Indication: MYOCARDIAL INFARCTION
     Route: 048
     Dates: start: 201509
  5. ATENSINA [Suspect]
     Active Substance: CLONIDINE
     Indication: HYPERTENSION
     Route: 048
  6. ATENSINA [Suspect]
     Active Substance: CLONIDINE
     Dosage: AS PRESCRIBED BY PHYSICIAN
     Route: 048
  7. SELOZOK [Concomitant]
     Active Substance: METOPROLOL SUCCINATE
     Indication: ANGINA PECTORIS
  8. PURAN [Concomitant]
     Active Substance: LEVOTHYROXINE SODIUM
     Indication: HYPOTHYROIDISM
     Route: 048
     Dates: start: 1986
  9. ASPIRINA PREVENT [Concomitant]
     Active Substance: ASPIRIN
     Indication: ANTICOAGULANT THERAPY
     Route: 048
     Dates: start: 201509
  10. ATENSINA [Suspect]
     Active Substance: CLONIDINE
     Route: 048
  11. ATENSINA [Suspect]
     Active Substance: CLONIDINE
     Route: 048
     Dates: start: 201403
  12. ATENSINA [Suspect]
     Active Substance: CLONIDINE
     Route: 048

REACTIONS (22)
  - Peripheral swelling [Recovered/Resolved]
  - Angina pectoris [Unknown]
  - Catheterisation cardiac [Recovered/Resolved]
  - Angioplasty [Recovered/Resolved]
  - Dizziness [Unknown]
  - Contusion [Recovered/Resolved]
  - Catheterisation cardiac [Recovered/Resolved]
  - Tremor [Recovered/Resolved]
  - Hypertension [Unknown]
  - Product quality issue [Unknown]
  - Chest pain [Not Recovered/Not Resolved]
  - Angioplasty [Recovered/Resolved]
  - Vision blurred [Recovered/Resolved]
  - Blood pressure increased [Unknown]
  - Angioplasty [Recovered/Resolved]
  - Haemorrhage [Recovered/Resolved]
  - Thrombosis [Not Recovered/Not Resolved]
  - Blood pressure increased [Not Recovered/Not Resolved]
  - Vasculitis [Unknown]
  - Drug ineffective [Recovered/Resolved]
  - Incorrect dose administered [Unknown]
  - Arterial rupture [Recovered/Resolved]

NARRATIVE: CASE EVENT DATE: 201506
